FAERS Safety Report 5399510-2 (Version None)
Quarter: 2007Q3

REPORT INFORMATION
  Report Type: 
  Country: None (occurrence: None)
  Receive Date: 20070727
  Receipt Date: 20070716
  Transmission Date: 20080115
  Serious: Yes (Hospitalization)
  Sender: FDA-Public Use
  Company Number: DE-ASTRAZENECA-2007PK01518

PATIENT
  Age: 70 Year
  Sex: Male

DRUGS (2)
  1. SEROQUEL [Suspect]
     Route: 048
  2. LAMICTAL [Concomitant]

REACTIONS (3)
  - DIABETES MELLITUS [None]
  - PRODUCTIVE COUGH [None]
  - SWOLLEN TONGUE [None]
